FAERS Safety Report 6862301-7 (Version None)
Quarter: 2010Q3

REPORT INFORMATION
  Report Type: 
  Country: None (occurrence: None)
  Receive Date: 20100721
  Receipt Date: 20100708
  Transmission Date: 20110219
  Serious: Yes (Hospitalization)
  Sender: FDA-Public Use
  Company Number: JP-AMGEN-US406697

PATIENT
  Sex: Female
  Weight: 49 kg

DRUGS (7)
  1. ENBREL [Suspect]
     Indication: RHEUMATOID ARTHRITIS
     Route: 058
     Dates: start: 20050820, end: 20061111
  2. ENBREL [Suspect]
     Route: 058
     Dates: start: 20061115, end: 20090901
  3. ENBREL [Suspect]
     Route: 058
     Dates: start: 20090901, end: 20091023
  4. ENBREL [Suspect]
     Route: 058
     Dates: start: 20091106, end: 20100212
  5. ADALAT - SLOW RELEASE [Concomitant]
     Indication: HYPERTENSION
     Route: 048
     Dates: end: 20100408
  6. RHEUMATREX [Concomitant]
     Indication: RHEUMATOID ARTHRITIS
     Route: 048
     Dates: start: 20090703, end: 20091016
  7. LASIX [Concomitant]
     Indication: RENAL DISORDER
     Route: 048
     Dates: end: 20100408

REACTIONS (4)
  - CONDITION AGGRAVATED [None]
  - RHEUMATOID ARTHRITIS [None]
  - SYNOVECTOMY [None]
  - SYSTEMIC LUPUS ERYTHEMATOSUS [None]
